FAERS Safety Report 7789202-4 (Version None)
Quarter: 2011Q3

REPORT INFORMATION
  Report Type: 
  Country: None (occurrence: None)
  Receive Date: 20110930
  Receipt Date: 20110926
  Transmission Date: 20111222
  Serious: Yes (Hospitalization)
  Sender: FDA-Public Use
  Company Number: FR-PFIZER INC-2011227906

PATIENT
  Age: 25 Year
  Sex: Male

DRUGS (17)
  1. CIPROFLOXACIN [Suspect]
     Dosage: 1 DF, 2X/DAY
     Route: 042
     Dates: start: 20110713, end: 20110715
  2. CLOFARABINE [Suspect]
     Dosage: 59 MG, 1X/DAY
     Route: 042
     Dates: start: 20110708, end: 20110712
  3. TARGOCID [Concomitant]
     Dosage: 400 MG, 2X/DAY
     Route: 042
     Dates: start: 20110713
  4. VALACYCLOVIR HYDROCHLORIDE [Suspect]
     Indication: ANTIVIRAL PROPHYLAXIS
     Dosage: 500 MG, 2X/DAY
     Route: 048
  5. ZOFRAN [Suspect]
     Dosage: 8 MG, 2X/DAY
     Route: 042
     Dates: start: 20110708, end: 20110713
  6. VFEND [Suspect]
     Indication: ANTIFUNGAL PROPHYLAXIS
     Dosage: 400 MG IN THE MORNING AND 200 MG IN THE EVENING
     Route: 048
  7. EMEND [Suspect]
     Dosage: 125 MG, 1X/DAY
     Route: 048
     Dates: start: 20110708, end: 20110708
  8. IMIPENEM [Concomitant]
     Dosage: 1 G, 3X/DAY
     Route: 042
     Dates: start: 20110713
  9. FASTURTEC [Concomitant]
     Dosage: 1.5 MG/ML
  10. CYTARABINE [Suspect]
     Indication: ACUTE MYELOID LEUKAEMIA
     Dosage: 1.9 G, 1X/DAY
     Route: 042
     Dates: start: 20110708, end: 20110712
  11. PENTAMIDINE [Concomitant]
     Dosage: 300 MG, MONTHLY
     Route: 055
     Dates: start: 20110708, end: 20110708
  12. AMIKACIN [Suspect]
     Dosage: 1 DF, 1X/DAY
     Route: 042
     Dates: start: 20110711, end: 20110712
  13. BACTRIM [Concomitant]
     Dosage: 2 TABLETS, 3 DAYS A WEEK
  14. HYDREA [Concomitant]
     Dosage: 1500 MG, 2X/DAY
  15. PIPERACILLIN AND TAZOBACTAM [Suspect]
     Dosage: 1 DF, 3X/DAY
     Route: 042
     Dates: start: 20110711, end: 20110712
  16. TRAMADOL HCL [Suspect]
     Dosage: 50 MG, 1X/DAY
     Route: 048
     Dates: start: 20110709, end: 20110712
  17. EMEND [Suspect]
     Dosage: 80 MG, 1X/DAY
     Route: 048
     Dates: start: 20110709, end: 20110713

REACTIONS (1)
  - PHOTOSENSITIVITY REACTION [None]
